FAERS Safety Report 4414866-2 (Version None)
Quarter: 2004Q3

REPORT INFORMATION
  Report Type: 
  Country: None (occurrence: None)
  Receive Date: 20040804
  Receipt Date: 20040105
  Transmission Date: 20050211
  Serious: No
  Sender: FDA-Public Use
  Company Number: US-BRISTOL-MYERS SQUIBB COMPANY-12468674

PATIENT
  Age: 76 Year
  Sex: Male
  Weight: 67 kg

DRUGS (12)
  1. GLUCOVANCE [Suspect]
     Indication: GLUCOSE TOLERANCE IMPAIRED
     Route: 048
     Dates: start: 20031219
  2. PREVACID [Concomitant]
  3. ALLOPURINOL [Concomitant]
  4. INDAPAMIDE [Concomitant]
  5. LIPITOR [Concomitant]
  6. TICAR [Concomitant]
  7. CALCIUM [Concomitant]
  8. FOSAMAX [Concomitant]
  9. MULTI-VITAMIN [Concomitant]
  10. SAW PALMETTO [Concomitant]
  11. ASPIRIN [Concomitant]
  12. FLONASE [Concomitant]

REACTIONS (2)
  - DIZZINESS [None]
  - VISUAL DISTURBANCE [None]
